FAERS Safety Report 21609339 (Version 1)
Quarter: 2022Q4

REPORT INFORMATION
  Report Type: Spontaneous
  Country: CH (occurrence: CH)
  Receive Date: 20221117
  Receipt Date: 20221117
  Transmission Date: 20230113
  Serious: Yes (Death, Life-Threatening, Hospitalization, Other)
  Sender: FDA-Public Use
  Company Number: None

PATIENT
  Age: 59 Year
  Sex: Male

DRUGS (56)
  1. MEROPENEM [Suspect]
     Active Substance: MEROPENEM
     Dosage: 1
     Dates: start: 20211115, end: 20211116
  2. MEROPENEM [Suspect]
     Active Substance: MEROPENEM
     Dosage: 1
     Dates: start: 20211205, end: 20211213
  3. MEROPENEM [Suspect]
     Active Substance: MEROPENEM
     Dosage: 1
     Dates: start: 20211220, end: 20211220
  4. LORAZEPAM [Suspect]
     Active Substance: LORAZEPAM
     Dosage: 1
     Dates: start: 20211126, end: 20211204
  5. AMBISOME [Suspect]
     Active Substance: AMPHOTERICIN B
     Dosage: 1
     Dates: start: 20211204, end: 20211209
  6. NOXAFIL [Suspect]
     Active Substance: POSACONAZOLE
     Dosage: 1
     Dates: start: 20211115, end: 20211204
  7. CEFEPIME [Suspect]
     Active Substance: CEFEPIME HYDROCHLORIDE
     Dosage: 1
     Dates: start: 20211109, end: 20211205
  8. VANCOMYCIN [Suspect]
     Active Substance: VANCOMYCIN
     Dosage: 1
     Dates: start: 20211115, end: 20211116
  9. VANCOMYCIN [Suspect]
     Active Substance: VANCOMYCIN
     Dosage: 1
     Dates: start: 20211130, end: 20211206
  10. VANCOMYCIN [Suspect]
     Active Substance: VANCOMYCIN
     Dosage: 1
     Dates: start: 20211220, end: 20211220
  11. ACETAMINOPHEN [Suspect]
     Active Substance: ACETAMINOPHEN
     Dosage: 1
     Dates: start: 20211110, end: 20211209
  12. REMERON [Suspect]
     Active Substance: MIRTAZAPINE
     Dosage: 1
     Dates: start: 20211126, end: 20211208
  13. ROCURONIUM BROMIDE [Suspect]
     Active Substance: ROCURONIUM BROMIDE
     Dosage: 1
     Dates: start: 20211116, end: 20211209
  14. METRONIDAZOLE [Suspect]
     Active Substance: METRONIDAZOLE
     Dosage: 1
     Dates: start: 20211110, end: 20211114
  15. METRONIDAZOLE [Suspect]
     Active Substance: METRONIDAZOLE
     Dosage: 1
     Dates: start: 20211121, end: 20211205
  16. DOXYCYCLINE [Concomitant]
     Active Substance: DOXYCYCLINE
     Indication: Acute respiratory distress syndrome
     Dosage: 1
     Dates: start: 20211112, end: 20211118
  17. BACTRIM [Concomitant]
     Active Substance: SULFAMETHOXAZOLE\TRIMETHOPRIM
     Indication: Acute respiratory distress syndrome
     Dosage: 1
     Dates: start: 20211115, end: 20211220
  18. VALTREX [Concomitant]
     Active Substance: VALACYCLOVIR HYDROCHLORIDE
     Indication: Acute respiratory distress syndrome
     Dosage: 1
     Dates: start: 20211110, end: 20211220
  19. CLARITHROMYCIN [Concomitant]
     Active Substance: CLARITHROMYCIN
     Indication: Acute respiratory distress syndrome
     Dosage: 1
     Dates: start: 20211109, end: 20211112
  20. SOLU-MEDROL [Concomitant]
     Active Substance: METHYLPREDNISOLONE SODIUM SUCCINATE
     Indication: Acute respiratory distress syndrome
     Dosage: 1
     Dates: start: 20211209, end: 20211220
  21. ALUCOL [ALGELDRATE;MAGNESIUM HYDROXIDE] [Concomitant]
     Dosage: 1
     Dates: start: 20211110, end: 20211202
  22. AMLODIPINE [Concomitant]
     Active Substance: AMLODIPINE BESYLATE
     Dosage: 1
     Dates: start: 20211125, end: 20211202
  23. ATROVENT [Concomitant]
     Active Substance: IPRATROPIUM BROMIDE
     Dosage: 1
     Dates: start: 20211114, end: 20211220
  24. THIAMINE HYDROCHLORIDE [Concomitant]
     Active Substance: THIAMINE HYDROCHLORIDE
     Dosage: 1
     Dates: start: 20211212, end: 20211220
  25. CORDARONE [Concomitant]
     Active Substance: AMIODARONE HYDROCHLORIDE
     Dosage: 1
     Dates: start: 20211120, end: 20211220
  26. DEXMEDETOMIDINE HYDROCHLORIDE [Concomitant]
     Active Substance: DEXMEDETOMIDINE HYDROCHLORIDE
     Dosage: 1
     Dates: start: 20211218, end: 20211220
  27. DIGOXIN [Concomitant]
     Active Substance: DIGOXIN
     Dosage: 1
     Dates: start: 20211202, end: 20211203
  28. DIGOXIN [Concomitant]
     Active Substance: DIGOXIN
     Dosage: 1
     Dates: start: 20211216, end: 20211216
  29. MIDAZOLAM HYDROCHLORIDE [Concomitant]
     Active Substance: MIDAZOLAM HYDROCHLORIDE
     Dosage: 1
     Dates: start: 20211110, end: 20211216
  30. DUPHALAC [Concomitant]
     Active Substance: LACTULOSE
     Dosage: 1
     Dates: start: 20211211, end: 20211219
  31. FASTURTEC [Concomitant]
     Active Substance: RASBURICASE
     Dosage: 1 SINGLE DOSE ON 09NOV2021 AND 17NOV2021)
     Dates: start: 20211109, end: 20211117
  32. FENTANYL [Concomitant]
     Active Substance: FENTANYL
     Dosage: 1
     Dates: start: 20211116, end: 20211219
  33. HEPARIN SODIUM [Concomitant]
     Active Substance: HEPARIN SODIUM
     Dosage: 1
     Dates: start: 20211212, end: 20211220
  34. NOVORAPID [Concomitant]
     Active Substance: INSULIN ASPART
     Dosage: 1
     Dates: start: 20211116, end: 20211217
  35. KONAKION [Concomitant]
     Active Substance: PHYTONADIONE
     Dosage: 1
     Dates: start: 20211116, end: 20211220
  36. LASIX [Concomitant]
     Active Substance: FUROSEMIDE
     Dosage: 1
     Dates: start: 20211111, end: 20211118
  37. SODIUM PICOSULFATE [Concomitant]
     Active Substance: SODIUM PICOSULFATE
     Dosage: 1
     Dates: start: 20211117, end: 20211119
  38. DOLOPHINE [Concomitant]
     Active Substance: METHADONE HYDROCHLORIDE
     Dosage: 1
     Dates: start: 20211203, end: 20211213
  39. METOCLOPRAMIDE HYDROCHLORIDE [Concomitant]
     Active Substance: METOCLOPRAMIDE HYDROCHLORIDE
     Dosage: 1
     Dates: start: 20211111, end: 20211214
  40. METOPROLOL [Concomitant]
     Active Substance: METOPROLOL
     Dosage: 1
     Dates: start: 20211124, end: 20211216
  41. MORPHINE SULFATE [Concomitant]
     Active Substance: MORPHINE SULFATE
     Dosage: 1
     Dates: start: 20211011, end: 20211220
  42. ESOMEPRAZOLE MAGNESIUM [Concomitant]
     Active Substance: ESOMEPRAZOLE MAGNESIUM
     Dosage: 1
     Dates: start: 20211110, end: 20211114
  43. NOREPINEPHRINE [Concomitant]
     Active Substance: NOREPINEPHRINE
     Dosage: 1
     Dates: start: 20211115, end: 20211220
  44. NOVALGIN (METAMIZOLE SODIUM) [Concomitant]
     Active Substance: METAMIZOLE SODIUM
     Dosage: 1
     Dates: start: 20211112, end: 20211115
  45. OLMESARTAN [Concomitant]
     Active Substance: OLMESARTAN
     Dosage: 1
     Dates: start: 20211110, end: 20211217
  46. ONDANSETRON [Concomitant]
     Active Substance: ONDANSETRON
     Dosage: 1
     Dates: start: 20211110, end: 20211122
  47. PANTOZOL [Concomitant]
     Active Substance: PANTOPRAZOLE SODIUM
     Dosage: 1
     Dates: start: 20211114, end: 20211219
  48. PHOSCAP [Concomitant]
     Dosage: 1
     Dates: start: 20211209, end: 20211210
  49. PROPOFOL [Concomitant]
     Active Substance: PROPOFOL
     Dosage: 1
     Dates: start: 20211116, end: 20211213
  50. RENAGEL [Concomitant]
     Active Substance: SEVELAMER HYDROCHLORIDE
     Dosage: 1
     Dates: start: 20211125, end: 20211201
  51. ALBUTEROL SULFATE [Concomitant]
     Active Substance: ALBUTEROL SULFATE
     Dosage: 1
     Dates: start: 20211114, end: 20211220
  52. TRACRIUM [Concomitant]
     Active Substance: ATRACURIUM BESYLATE
     Dosage: 1
     Dates: start: 20211122, end: 20211207
  53. TRANSIPEG [MACROGOL 3350;POTASSIUM CHLORIDE;SODIUM BICARBONATE;SODIUM [Concomitant]
     Dosage: 1
     Dates: start: 20211116, end: 20211208
  54. URAPIDIL [Concomitant]
     Active Substance: URAPIDIL
     Dosage: 1
     Dates: start: 20211124, end: 20211125
  55. ALLOPURINOL [Concomitant]
     Active Substance: ALLOPURINOL
     Dosage: 1
     Dates: start: 20211110, end: 20211220
  56. XIFAXAN [Concomitant]
     Active Substance: RIFAXIMIN
     Dosage: 1
     Dates: start: 20211211, end: 20211220

REACTIONS (1)
  - Drug-induced liver injury [Fatal]

NARRATIVE: CASE EVENT DATE: 20211208
